FAERS Safety Report 10158894 (Version 2)
Quarter: 2014Q2

REPORT INFORMATION
  Report Type: Report from Study
  Country: US (occurrence: US)
  Receive Date: 20140508
  Receipt Date: 20140603
  Transmission Date: 20141212
  Serious: Yes (Death)
  Sender: FDA-Public Use
  Company Number: US-BIOGENIDEC-2014BI039450

PATIENT
  Sex: Female

DRUGS (5)
  1. TECFIDERA [Suspect]
     Indication: MULTIPLE SCLEROSIS
     Route: 048
     Dates: start: 201308, end: 201404
  2. CATAPRES [Concomitant]
  3. COUMADIN [Concomitant]
  4. ZOCOR [Concomitant]
  5. COZAAR [Concomitant]

REACTIONS (3)
  - Multiple sclerosis [Fatal]
  - Cerebrovascular accident [Fatal]
  - Infection [Not Recovered/Not Resolved]
